FAERS Safety Report 13765153 (Version 1)
Quarter: 2017Q3

REPORT INFORMATION
  Report Type: Spontaneous
  Country: FR (occurrence: FR)
  Receive Date: 20170718
  Receipt Date: 20170718
  Transmission Date: 20171127
  Serious: Yes (Hospitalization)
  Sender: FDA-Public Use
  Company Number: FR-PFIZER INC-2451725

PATIENT
  Age: 62 Year
  Sex: Female

DRUGS (3)
  1. METHYLPREDNISOLONE MERCK [Concomitant]
     Active Substance: METHYLPREDNISOLONE
     Indication: PREMEDICATION
     Dosage: 60 MG,1 DAY
     Route: 042
     Dates: start: 20140526, end: 20140526
  2. CARBOPLATIN. [Suspect]
     Active Substance: CARBOPLATIN
     Indication: ADENOCARCINOMA
     Dosage: 650 MG, 1 DAY
     Route: 041
     Dates: start: 20140526, end: 20140526
  3. AVASTIN /00848101/ [Suspect]
     Active Substance: SIMVASTATIN
     Indication: ADENOCARCINOMA
     Dosage: 1260 MG, 1 DAY
     Route: 041
     Dates: start: 20140526, end: 20140526

REACTIONS (5)
  - Infusion related reaction [Recovered/Resolved]
  - Chills [Recovered/Resolved]
  - Flushing [Recovered/Resolved]
  - Diarrhoea [Recovered/Resolved]
  - Hot flush [Recovered/Resolved]

NARRATIVE: CASE EVENT DATE: 20140526
